FAERS Safety Report 13500157 (Version 1)
Quarter: 2017Q2

REPORT INFORMATION
  Report Type: Other
  Country: US (occurrence: US)
  Receive Date: 20170501
  Receipt Date: 20170501
  Transmission Date: 20170830
  Serious: Yes (Other)
  Sender: FDA-Public Use
  Company Number: US-SHIRE-US201709534

PATIENT
  Age: 34 Year
  Sex: Female

DRUGS (1)
  1. NATPARA (PARATHYROID HORMONE) [Suspect]
     Active Substance: PARATHYROID HORMONE
     Indication: HYPOPARATHYROIDISM
     Dosage: 75 MG, 1X/DAY:QD
     Route: 058
     Dates: start: 20170216

REACTIONS (2)
  - Bone fragmentation [Unknown]
  - Bone cancer [Unknown]

NARRATIVE: CASE EVENT DATE: 20170419
